FAERS Safety Report 5252578-6 (Version None)
Quarter: 2007Q1

REPORT INFORMATION
  Report Type: 
  Country: None (occurrence: None)
  Receive Date: 20070301
  Receipt Date: 20070221
  Transmission Date: 20070707
  Serious: Yes (Hospitalization)
  Sender: FDA-Public Use
  Company Number: US-AMGEN-US212174

PATIENT
  Sex: Male
  Weight: 50 kg

DRUGS (17)
  1. EPOGEN [Suspect]
     Indication: DIALYSIS
     Route: 065
     Dates: start: 20051201
  2. RESTORIL [Concomitant]
  3. REMERON [Concomitant]
  4. BENZONATATE [Concomitant]
  5. AMPHOTERICIN B [Concomitant]
  6. TYLENOL [Concomitant]
  7. SUCRALFATE [Concomitant]
  8. PROTONIX [Concomitant]
  9. PREDNISONE [Concomitant]
  10. TOPROL-XL [Concomitant]
  11. NEPHRO-CAPS [Concomitant]
  12. FOLIC ACID [Concomitant]
  13. MIRAPEX [Concomitant]
  14. MIDRIN [Concomitant]
  15. COUMADIN [Concomitant]
  16. DEPAKOTE [Concomitant]
  17. RENAGEL [Concomitant]

REACTIONS (2)
  - GASTROINTESTINAL HAEMORRHAGE [None]
  - THERAPEUTIC RESPONSE DECREASED [None]
